FAERS Safety Report 5344165-6 (Version None)
Quarter: 2007Q2

REPORT INFORMATION
  Report Type: 
  Country: None (occurrence: None)
  Receive Date: 20070604
  Receipt Date: 20070523
  Transmission Date: 20071010
  Serious: Yes (Hospitalization)
  Sender: FDA-Public Use
  Company Number: US-ROCHE-489454

PATIENT
  Age: 74 Year
  Sex: Female
  Weight: 76.2 kg

DRUGS (12)
  1. CAPECITABINE [Suspect]
     Dosage: FREQUENCY REPORTED AS ^BIDXD EVERY 14 DAYS^.  REPORTED AS PILL.
     Route: 048
     Dates: start: 20070302, end: 20070404
  2. BEVACIZUMAB [Suspect]
     Dosage: GIVEN ON DAY 1 EVERY 14 DAYS.
     Route: 042
     Dates: start: 20070302, end: 20070404
  3. OXALIPLATIN [Suspect]
     Dosage: FREQUENCY REPORTED AS ^Q 14 DAYS^.
     Route: 042
     Dates: start: 20070302, end: 20070404
  4. METOPROLOL SUCCINATE [Concomitant]
     Dates: start: 19970101
  5. 1 CONCOMITANT DRUG [Concomitant]
     Dosage: DRUG NAME REPORTED AS ^DEVIAN^.  TOTAL DAILY DOSE REPORTED AS ^80/12^.
     Dates: start: 19970101
  6. PHENERGAN HCL [Concomitant]
     Dates: start: 20070305
  7. GLYBURIDE [Concomitant]
     Dates: start: 19970101
  8. LISINOPRIL [Concomitant]
     Dates: start: 20070320
  9. WARFARIN SODIUM [Concomitant]
     Dates: start: 20070302
  10. 1 CONCOMITANT DRUG [Concomitant]
     Dosage: DRUG REPORTED AS ^CLIMESPRIDE^.
     Dates: start: 20070302
  11. 1 CONCOMITANT DRUG [Concomitant]
     Dosage: REPORTED AS ^CIMADINE^.
     Dates: start: 20070302
  12. PEPCID [Concomitant]
     Dates: start: 20070305

REACTIONS (1)
  - BUNDLE BRANCH BLOCK LEFT [None]
